FAERS Safety Report 18175462 (Version 3)
Quarter: 2020Q4

REPORT INFORMATION
  Report Type: Other
  Country: US (occurrence: US)
  Receive Date: 20200820
  Receipt Date: 20201115
  Transmission Date: 20210113
  Serious: Yes (Hospitalization, Other)
  Sender: FDA-Public Use
  Company Number: US-AMAG PHARMACEUTICALS, INC.-AMAG202002825

PATIENT
  Age: 0 Day
  Sex: Female
  Weight: 1.59 kg

DRUGS (1)
  1. MAKENA [Suspect]
     Active Substance: HYDROXYPROGESTERONE CAPROATE
     Indication: FOETAL EXPOSURE DURING PREGNANCY
     Dosage: 250 MG/ML, WEEKLY
     Route: 064
     Dates: start: 20200514, end: 20200805

REACTIONS (3)
  - Respiratory disorder neonatal [Unknown]
  - Premature baby [Recovered/Resolved]
  - Poor feeding infant [Unknown]

NARRATIVE: CASE EVENT DATE: 20200805
